FAERS Safety Report 9013868 (Version 1)
Quarter: 2013Q1

REPORT INFORMATION
  Report Type: Spontaneous
  Country: US (occurrence: US)
  Receive Date: 20130115
  Receipt Date: 20130115
  Transmission Date: 20140127
  Serious: Yes (Other)
  Sender: FDA-Public Use
  Company Number: US-009507513-1007USA03880

PATIENT
  Age: 6 Year
  Sex: Male
  Weight: 22.68 kg

DRUGS (2)
  1. SINGULAIR [Suspect]
     Indication: ASTHMA
     Dosage: 1 DF, QD AT BEDTIME
     Route: 048
     Dates: start: 20050511, end: 20091014
  2. SINGULAIR [Suspect]
     Indication: HYPERSENSITIVITY

REACTIONS (10)
  - Enuresis [Recovered/Resolved]
  - Abnormal dreams [Recovered/Resolved]
  - Hallucination [Recovered/Resolved]
  - Hypophagia [Recovered/Resolved]
  - Nightmare [Recovered/Resolved]
  - Psychomotor hyperactivity [Recovered/Resolved]
  - Restlessness [Recovered/Resolved]
  - Screaming [Recovered/Resolved]
  - Skin discolouration [Unknown]
  - Sleep disorder [Recovered/Resolved]
